FAERS Safety Report 17956217 (Version 4)
Quarter: 2021Q4

REPORT INFORMATION
  Report Type: Spontaneous
  Country: US (occurrence: US)
  Receive Date: 20200629
  Receipt Date: 20211108
  Transmission Date: 20220303
  Serious: No
  Sender: FDA-Public Use
  Company Number: US-VERTEX PHARMACEUTICALS-2020-013612

PATIENT
  Sex: Male
  Weight: 91 kg

DRUGS (2)
  1. TRIKAFTA [Suspect]
     Active Substance: ELEXACAFTOR\IVACAFTOR\TEZACAFTOR
     Indication: Cystic fibrosis
     Dosage: 2 ORANGE TAB  AM; 1 LIGHT BLUE TAB  PM
     Route: 048
     Dates: start: 20200116
  2. TRIKAFTA [Suspect]
     Active Substance: ELEXACAFTOR\IVACAFTOR\TEZACAFTOR
     Dosage: MORNING DOSE ONLY (1 ORANGE PILL ONE DAY AND 2 ORANGE PILLS NEXT DAY ON ROTATIONAL BASIS)
     Route: 048

REACTIONS (1)
  - Hepatic enzyme increased [Recovering/Resolving]
